FAERS Safety Report 16729185 (Version 1)
Quarter: 2019Q3

REPORT INFORMATION
  Report Type: Spontaneous
  Country: FR (occurrence: FR)
  Receive Date: 20190822
  Receipt Date: 20190822
  Transmission Date: 20191005
  Serious: Yes (Death, Hospitalization)
  Sender: FDA-Public Use
  Company Number: FR-PFIZER INC-2019355777

PATIENT
  Age: 86 Year
  Sex: Male
  Weight: 63 kg

DRUGS (15)
  1. MOLSIDOMINE [Concomitant]
     Active Substance: MOLSIDOMINE
     Indication: MYOCARDIAL ISCHAEMIA
     Dosage: 6 MG, 1X/DAY (1-1-1)
     Route: 048
     Dates: start: 2014, end: 20190705
  2. TRAMADOL HCL [Concomitant]
     Active Substance: TRAMADOL HYDROCHLORIDE
     Indication: ANALGESIC INTERVENTION SUPPORTIVE THERAPY
     Dosage: 200 MG, 1X/DAY (1-0-1)
     Route: 048
     Dates: start: 20190611
  3. RAMIPRIL. [Concomitant]
     Active Substance: RAMIPRIL
     Indication: HYPERTENSION
     Dosage: 10 MG, 1X/DAY (1-0-0)
     Route: 048
     Dates: start: 2014, end: 20190725
  4. AVODART [Concomitant]
     Active Substance: DUTASTERIDE
     Indication: DYSURIA
     Dosage: 0.5 MG, 1X/DAY (0-1-0)
     Route: 048
     Dates: start: 2015
  5. MACROGOL 4000 [Concomitant]
     Active Substance: POLYETHYLENE GLYCOL 4000
     Indication: CONSTIPATION
     Dosage: 1 DF, 1X/DAY (1-0-0)
     Route: 048
     Dates: start: 20190529
  6. METHYLPREDNISOLONE. [Suspect]
     Active Substance: METHYLPREDNISOLONE
     Indication: PREMEDICATION
     Dosage: 60 MG, CYCLIC
     Route: 042
     Dates: start: 20190704, end: 20190704
  7. EZETROL [Concomitant]
     Active Substance: EZETIMIBE
     Indication: MYOCARDIAL ISCHAEMIA
     Dosage: 10 MG, 1X/DAY (0-0-1)
     Route: 048
     Dates: start: 2014
  8. NEBIVOLOL. [Concomitant]
     Active Substance: NEBIVOLOL
     Indication: MYOCARDIAL ISCHAEMIA
     Dosage: 5 MG, 1X/DAY (1-0-0)
     Route: 048
     Dates: start: 2014
  9. MOMETASONE FUROATE. [Concomitant]
     Active Substance: MOMETASONE FUROATE
     Indication: RHINITIS
     Dosage: 100 UG, 1X/DAY (2-0-0)
     Route: 055
     Dates: start: 2016
  10. TARDYFERON [Concomitant]
     Active Substance: FERROUS SULFATE
     Indication: CONSTIPATION
     Dosage: 160 MG, 1X/DAY (1-0-1)
     Route: 048
     Dates: start: 20190605, end: 20190705
  11. PARACETAMOL [Concomitant]
     Active Substance: ACETAMINOPHEN
     Indication: ANALGESIC INTERVENTION SUPPORTIVE THERAPY
     Dosage: 3 G, 1X/DAY (1-1-1)
     Route: 048
     Dates: start: 2014
  12. CLOPIDOGREL HYDROCHLORIDE [Concomitant]
     Active Substance: CLOPIDOGREL HYDROCHLORIDE
     Indication: MYOCARDIAL ISCHAEMIA
     Dosage: 75 MG, 1X/DAY (1-0-0)
     Route: 048
     Dates: start: 2014, end: 20190705
  13. SPASFON LYOC [Concomitant]
     Active Substance: PHLOROGLUCINOL
     Indication: MUSCLE SPASMS
     Dosage: 80 MG, AS NEEDED
     Route: 048
     Dates: start: 20190529
  14. KANJINTI [Suspect]
     Active Substance: TRASTUZUMAB-ANNS
     Indication: GASTRIC CANCER
     Dosage: 378 MG, CYCLIC
     Route: 042
     Dates: start: 20190704, end: 20190704
  15. ATORVASTATINE [ATORVASTATIN] [Concomitant]
     Active Substance: ATORVASTATIN
     Indication: MYOCARDIAL ISCHAEMIA
     Dosage: 80 MG, 1X/DAY (0-0-1)
     Route: 048
     Dates: start: 2014

REACTIONS (2)
  - Kounis syndrome [Recovered/Resolved with Sequelae]
  - Hypersensitivity [Recovered/Resolved]

NARRATIVE: CASE EVENT DATE: 20190704
